FAERS Safety Report 6601940-5 (Version None)
Quarter: 2010Q1

REPORT INFORMATION
  Report Type: 
  Country: None (occurrence: None)
  Receive Date: 20100218
  Receipt Date: 20100205
  Transmission Date: 20100710
  Serious: Yes (Hospitalization)
  Sender: FDA-Public Use
  Company Number: 006364

PATIENT
  Sex: Male

DRUGS (4)
  1. KEPPRA [Suspect]
     Indication: CEREBRAL HAEMORRHAGE
     Dosage: (ORAL)
     Route: 048
     Dates: start: 20091117, end: 20091207
  2. ATACAND [Suspect]
     Indication: HYPERTENSION
     Dates: start: 20091202, end: 20091207
  3. DOLTPRANE [Concomitant]
  4. OFLOCET /00731801/ [Concomitant]

REACTIONS (2)
  - CYTOLYTIC HEPATITIS [None]
  - SERRATIA INFECTION [None]
